FAERS Safety Report 14392287 (Version 5)
Quarter: 2018Q1

REPORT INFORMATION
  Report Type: Report from Study
  Country: US (occurrence: US)
  Receive Date: 20180116
  Receipt Date: 20180228
  Transmission Date: 20180509
  Serious: No
  Sender: FDA-Public Use
  Company Number: PHEH2018US001572

PATIENT
  Sex: Male

DRUGS (1)
  1. ENTRESTO [Suspect]
     Active Substance: SACUBITRIL\VALSARTAN
     Indication: CARDIAC FAILURE
     Dosage: 50 MG (24MG OF SACUBITRIL AND 26MG OF VALSARTAN), BID
     Route: 048

REACTIONS (2)
  - Blood glucose abnormal [Unknown]
  - Blood pressure abnormal [Unknown]
